FAERS Safety Report 24841101 (Version 3)
Quarter: 2025Q3

REPORT INFORMATION
  Report Type: Spontaneous
  Country: EU (occurrence: EU)
  Receive Date: 20250114
  Receipt Date: 20250803
  Transmission Date: 20251020
  Serious: Yes (Other)
  Sender: ALEXION PHARMACEUTICALS
  Company Number: EU-AstraZeneca-CH-00723853A

PATIENT
  Age: 65 Year
  Sex: Female
  Weight: 75 kg

DRUGS (2)
  1. TAGRISSO [Suspect]
     Active Substance: OSIMERTINIB
     Indication: Non-small cell lung cancer
     Dosage: 40 MILLIGRAM, QD
     Dates: start: 202402
  2. TAGRISSO [Suspect]
     Active Substance: OSIMERTINIB
     Dosage: 80 MILLIGRAM, QD
     Dates: start: 20211201

REACTIONS (10)
  - Drug resistance [Unknown]
  - Malignant neoplasm progression [Unknown]
  - Renal impairment [Recovering/Resolving]
  - Nail psoriasis [Unknown]
  - Diarrhoea [Recovering/Resolving]
  - Nail disorder [Unknown]
  - Onychomycosis [Unknown]
  - Fatigue [Recovering/Resolving]
  - Weight increased [Unknown]
  - Product dose omission issue [Unknown]

NARRATIVE: CASE EVENT DATE: 20241010
